FAERS Safety Report 9464774 (Version 1)
Quarter: 2013Q3

REPORT INFORMATION
  Report Type: Report from Study
  Country: BR (occurrence: BR)
  Receive Date: 20130819
  Receipt Date: 20130819
  Transmission Date: 20140515
  Serious: Yes (Death, Other)
  Sender: FDA-Public Use
  Company Number: PHHY2013BR088144

PATIENT
  Sex: Male

DRUGS (1)
  1. FORASEQ [Suspect]
     Indication: BRONCHITIS
     Dosage: UNK

REACTIONS (2)
  - Death [Fatal]
  - Bronchitis [Recovering/Resolving]
